FAERS Safety Report 6954313-X (Version None)
Quarter: 2010Q3

REPORT INFORMATION
  Report Type: 
  Country: None (occurrence: None)
  Receive Date: 20100829
  Receipt Date: 20100708
  Transmission Date: 20110219
  Serious: No
  Sender: FDA-Public Use
  Company Number: US-ABBOTT-10P-163-0656933-00

PATIENT
  Sex: Female
  Weight: 64.468 kg

DRUGS (6)
  1. NIASPAN [Suspect]
     Indication: BLOOD CHOLESTEROL INCREASED
     Dosage: EVERY NIGHT
     Dates: start: 20100401
  2. BONIVA [Concomitant]
     Indication: OSTEOPENIA
  3. MULTI-VITAMIN [Concomitant]
     Indication: PRODUCT USED FOR UNKNOWN INDICATION
  4. VITAMIN D [Concomitant]
     Indication: PRODUCT USED FOR UNKNOWN INDICATION
  5. FISH OIL [Concomitant]
     Indication: PRODUCT USED FOR UNKNOWN INDICATION
  6. ASPIRIN [Concomitant]
     Indication: PRODUCT USED FOR UNKNOWN INDICATION
     Dates: end: 20100704

REACTIONS (6)
  - DIZZINESS [None]
  - FEELING HOT [None]
  - FLUSHING [None]
  - LARYNGITIS [None]
  - PARAESTHESIA [None]
  - PARANASAL SINUS HYPERSECRETION [None]
